FAERS Safety Report 5711443-8 (Version None)
Quarter: 2008Q2

REPORT INFORMATION
  Report Type: 
  Country: None (occurrence: None)
  Receive Date: 20080418
  Receipt Date: 20080418
  Transmission Date: 20081010
  Serious: Yes (Other)
  Sender: FDA-Public Use
  Company Number: None

PATIENT
  Sex: Male

DRUGS (2)
  1. HUMIRA [Suspect]
     Indication: CROHN'S DISEASE
     Dosage: 40 MG EVERY 2 WKS SQ
     Route: 058
     Dates: start: 20080101
  2. IMURAN [Suspect]
     Indication: CROHN'S DISEASE
     Dosage: 50 MG BID PO
     Route: 048
     Dates: start: 20070601

REACTIONS (1)
  - OESOPHAGEAL CANDIDIASIS [None]
